FAERS Safety Report 23083805 (Version 1)
Quarter: 2023Q4

REPORT INFORMATION
  Report Type: Report from Study
  Country: CA (occurrence: CA)
  Receive Date: 20231019
  Receipt Date: 20231019
  Transmission Date: 20240109
  Serious: Yes (Death, Hospitalization, Other)
  Sender: FDA-Public Use
  Company Number: CA-002147023-NVSC2022CA276809

PATIENT
  Age: 77 Year
  Sex: Male

DRUGS (1)
  1. ERELZI [Suspect]
     Active Substance: ETANERCEPT-SZZS
     Indication: Psoriatic arthropathy
     Dosage: 50 MG (STOPPED 6 MONTHS AGO)
     Route: 058
     Dates: start: 20201106

REACTIONS (5)
  - Death [Fatal]
  - Nervous system disorder [Unknown]
  - COVID-19 [Unknown]
  - Pneumonia [Unknown]
  - Neurodegenerative disorder [Unknown]

NARRATIVE: CASE EVENT DATE: 20221117
